FAERS Safety Report 8641563 (Version 2)
Quarter: 2012Q4

REPORT INFORMATION
  Report Type: 
  Country: FR (occurrence: FR)
  Receive Date: 20120628
  Receipt Date: 20121017
  Transmission Date: 20130627
  Serious: Yes (Other)
  Sender: FDA-Public Use
  Company Number: FR-GLAXOSMITHKLINE-B0810015A

PATIENT
  Age: 63 None
  Sex: Male

DRUGS (9)
  1. REQUIP [Suspect]
     Indication: PARKINSON^S DISEASE
     Route: 065
     Dates: start: 1998, end: 200711
  2. ZYLORIC [Concomitant]
     Route: 065
  3. MANTADIX [Concomitant]
     Dosage: 100MG Twice per day
     Route: 065
     Dates: start: 199901
  4. DEPRENYL [Concomitant]
     Dosage: 1TAB Twice per day
     Route: 065
     Dates: start: 199901
  5. SINEMET [Concomitant]
     Indication: PARKINSON^S DISEASE
     Route: 065
  6. COMTAN [Concomitant]
     Indication: PARKINSON^S DISEASE
     Route: 065
     Dates: start: 2005
  7. RIVOTRIL [Concomitant]
     Route: 065
  8. NEURONTIN [Concomitant]
     Indication: PAIN
     Route: 065
     Dates: start: 200605
  9. ALLOPURINOL [Concomitant]
     Route: 065

REACTIONS (14)
  - Pathological gambling [Recovered/Resolved]
  - Compulsive shopping [Recovered/Resolved]
  - Hypersexuality [Recovered/Resolved]
  - Abnormal behaviour [Recovered/Resolved]
  - Theft [Recovered/Resolved]
  - Dopamine dysregulation syndrome [Recovered/Resolved]
  - Sudden onset of sleep [Recovered/Resolved]
  - Hypomania [Recovered/Resolved]
  - Somnolence [Unknown]
  - Hypersomnia [Unknown]
  - Euphoric mood [Unknown]
  - Dependence [Unknown]
  - Thinking abnormal [Unknown]
  - Aggression [Unknown]
